FAERS Safety Report 7711779-5 (Version None)
Quarter: 2011Q3

REPORT INFORMATION
  Report Type: 
  Country: None (occurrence: None)
  Receive Date: 20110826
  Receipt Date: 20110818
  Transmission Date: 20111222
  Serious: Yes (Other)
  Sender: FDA-Public Use
  Company Number: US-NAPPMUNDI-DEU-2011-0007369

PATIENT
  Age: 39 Year
  Sex: Female

DRUGS (4)
  1. HYDROMORPHONE HCL [Suspect]
     Indication: PAIN
     Dosage: UNK UNK, SEE TEXT
     Route: 042
  2. HYDROMORPHONE HCL [Suspect]
     Indication: NEURALGIA
     Dosage: UNK, PRN
  3. FENTANYL [Suspect]
     Indication: NEURALGIA
  4. FENTANYL [Suspect]
     Indication: PAIN
     Route: 042

REACTIONS (2)
  - PAIN [None]
  - APNOEA [None]
